FAERS Safety Report 5158066-X (Version None)
Quarter: 2006Q4

REPORT INFORMATION
  Report Type: 
  Country: None (occurrence: None)
  Receive Date: 20061116
  Receipt Date: 20061106
  Transmission Date: 20070319
  Serious: Yes (Other)
  Sender: FDA-Public Use
  Company Number: 062-20785-06110168

PATIENT
  Age: 64 Year
  Sex: Male

DRUGS (7)
  1. THALIDOMIDE - PHARMION (THALIDOMIDE) (50 MILLIGRAM, CAPSULES) [Suspect]
     Indication: PLASMACYTOMA
     Dosage: 200 MG, 4 IN 1 D, ORAL
     Route: 048
     Dates: start: 20060621
  2. IBANDRONIC ACID (IBANDRONIC ACID) [Concomitant]
  3. LAXATIVE (LAXATIVES) [Concomitant]
  4. ALLOPURINOL [Concomitant]
  5. NITRAZEPAM [Concomitant]
  6. SULPIRIDE (SULPIRIDE) [Concomitant]
  7. MIRTAZEPAM [Concomitant]

REACTIONS (5)
  - ARTERIOSCLEROSIS [None]
  - CONDITION AGGRAVATED [None]
  - HYPERTENSION [None]
  - RENAL FAILURE [None]
  - RENAL IMPAIRMENT [None]
